FAERS Safety Report 8601032-X (Version None)
Quarter: 2012Q3

REPORT INFORMATION
  Report Type: 
  Country: None (occurrence: None)
  Receive Date: 20120817
  Receipt Date: 20120810
  Transmission Date: 20120928
  Serious: Yes (Other)
  Sender: FDA-Public Use
  Company Number: TR-ASTELLAS-2012EU005860

PATIENT
  Age: 41 Year
  Sex: Female

DRUGS (4)
  1. AZATHIOPRINE SODIUM [Concomitant]
     Indication: RENAL TRANSPLANT
     Dosage: UNK
     Route: 065
  2. CORTICOSTEROID NOS [Concomitant]
     Indication: RENAL TRANSPLANT
     Dosage: UNK
     Route: 065
  3. TACROLIMUS [Suspect]
     Dosage: 5 MG, UNKNOWN/D
     Route: 065
  4. TACROLIMUS [Suspect]
     Indication: RENAL TRANSPLANT
     Dosage: 2 MG, UNKNOWN/D
     Route: 065

REACTIONS (5)
  - MATERNAL EXPOSURE DURING PREGNANCY [None]
  - HYPERTENSION [None]
  - PREMATURE DELIVERY [None]
  - PROTEINURIA [None]
  - PRE-ECLAMPSIA [None]
